FAERS Safety Report 13072671 (Version 2)
Quarter: 2018Q1

REPORT INFORMATION
  Report Type: Spontaneous
  Country: US (occurrence: US)
  Receive Date: 20161229
  Receipt Date: 20180115
  Transmission Date: 20180508
  Serious: Yes (Other)
  Sender: FDA-Public Use
  Company Number: US-SA-2016SA195537

PATIENT
  Age: 42 Year
  Sex: Female
  Weight: 71.67 kg

DRUGS (18)
  1. PERJETA [Concomitant]
     Active Substance: PERTUZUMAB
     Route: 042
     Dates: start: 20141218, end: 20141218
  2. NEULASTA [Concomitant]
     Active Substance: PEGFILGRASTIM
     Route: 065
  3. HERCEPTIN [Concomitant]
     Active Substance: TRASTUZUMAB
     Dosage: 8 MG/KG=554 MG
     Route: 042
     Dates: start: 20141128, end: 20141128
  4. TAXOTERE [Suspect]
     Active Substance: DOCETAXEL
     Indication: BREAST CANCER FEMALE
     Dosage: FREQUENCY: EVERY 3 WEEKS?DOSE: 75 MG/M2 X 1.74 M2
     Route: 051
     Dates: start: 20150618, end: 20150618
  5. HERCEPTIN [Concomitant]
     Active Substance: TRASTUZUMAB
     Route: 042
     Dates: start: 20151230, end: 20151230
  6. ALPRAZOLAM. [Concomitant]
     Active Substance: ALPRAZOLAM
     Route: 065
  7. TAXOTERE [Suspect]
     Active Substance: DOCETAXEL
     Indication: BREAST CANCER FEMALE
     Dosage: FREQUENCY: EVERY 3 WEEKS?DOSE: 75 MG/M2 X 1.74 M2
     Route: 051
     Dates: start: 20141128, end: 20141128
  8. PERJETA [Concomitant]
     Active Substance: PERTUZUMAB
     Route: 042
     Dates: start: 20151203, end: 20151203
  9. HERCEPTIN [Concomitant]
     Active Substance: TRASTUZUMAB
     Dosage: 6 MG/KG = 416 MG
     Route: 042
     Dates: start: 20141218, end: 20141218
  10. HERCEPTIN [Concomitant]
     Active Substance: TRASTUZUMAB
     Dosage: 6 MG/KG = 378 MG
     Route: 042
     Dates: start: 20160714, end: 20160714
  11. NORCO [Concomitant]
     Active Substance: ACETAMINOPHEN\HYDROCODONE BITARTRATE
     Route: 065
  12. PERJETA [Concomitant]
     Active Substance: PERTUZUMAB
     Route: 042
     Dates: start: 20141128, end: 20141128
  13. ZOFRAN [Concomitant]
     Active Substance: ONDANSETRON HYDROCHLORIDE
     Indication: PROPHYLAXIS OF NAUSEA AND VOMITING
     Route: 048
     Dates: start: 20141126, end: 20151126
  14. DECADRON [Concomitant]
     Active Substance: DEXAMETHASONE
     Dosage: BID DAY BEFORE AND DAY AFTER CHEMO
     Route: 048
     Dates: start: 20141126, end: 20150910
  15. FULVESTRANT. [Concomitant]
     Active Substance: FULVESTRANT
  16. HERCEPTIN [Concomitant]
     Active Substance: TRASTUZUMAB
     Dosage: 6 MG/KG = 378 MG
     Route: 042
     Dates: start: 20160121, end: 20160121
  17. COMPAZINE [Concomitant]
     Active Substance: PROCHLORPERAZINE MALEATE
     Indication: NAUSEA
     Route: 048
     Dates: start: 20141126, end: 20151126
  18. GABAPENTIN. [Concomitant]
     Active Substance: GABAPENTIN
     Route: 065
     Dates: start: 201412

REACTIONS (6)
  - Pain [Unknown]
  - Anxiety [Unknown]
  - Alopecia [Not Recovered/Not Resolved]
  - Emotional distress [Unknown]
  - Impaired quality of life [Unknown]
  - Psychological trauma [Unknown]

NARRATIVE: CASE EVENT DATE: 201412
